FAERS Safety Report 4913104-1 (Version None)
Quarter: 2006Q1

REPORT INFORMATION
  Report Type: 
  Country: None (occurrence: None)
  Receive Date: 20060210
  Receipt Date: 20060202
  Transmission Date: 20060701
  Serious: Yes (Death, Hospitalization, Other)
  Sender: FDA-Public Use
  Company Number: 2006-01-0829

PATIENT
  Age: 20 Year
  Sex: Male

DRUGS (1)
  1. TEMODAL [Suspect]
     Indication: GLIOBLASTOMA
     Dosage: ORAL
     Route: 048

REACTIONS (4)
  - ENCEPHALITIS HERPES [None]
  - PNEUMONIA [None]
  - SEPSIS [None]
  - TREATMENT NONCOMPLIANCE [None]
